FAERS Safety Report 11540284 (Version 3)
Quarter: 2016Q1

REPORT INFORMATION
  Report Type: Report from Study
  Country: BR (occurrence: BR)
  Receive Date: 20150923
  Receipt Date: 20160229
  Transmission Date: 20160525
  Serious: Yes (Hospitalization, Other)
  Sender: FDA-Public Use
  Company Number: PHHY2015BR090519

PATIENT
  Age: 41 Year
  Sex: Male
  Weight: 103 kg

DRUGS (4)
  1. ATENOLOL. [Concomitant]
     Active Substance: ATENOLOL
     Indication: HYPERTENSION
     Dosage: 1 DF, QD
     Route: 048
  2. SANDOSTATIN LAR DEPOT [Suspect]
     Active Substance: OCTREOTIDE ACETATE
     Indication: PANCREATIC CYST
     Dosage: 1 DF, EVERY 28 DAYS
     Route: 030
     Dates: start: 201411
  3. SANDOSTATIN LAR DEPOT [Suspect]
     Active Substance: OCTREOTIDE ACETATE
     Indication: NEUROENDOCRINE TUMOUR
  4. AMLODIPINE [Concomitant]
     Active Substance: AMLODIPINE BESYLATE
     Indication: HYPERTENSION
     Dosage: 1 DF, QD
     Route: 048

REACTIONS (7)
  - Weight decreased [Recovered/Resolved]
  - Weight increased [Unknown]
  - Blood calcium decreased [Recovered/Resolved]
  - Neoplasm [Unknown]
  - Malignant neoplasm progression [Unknown]
  - Cholecystitis [Recovered/Resolved]
  - Product use issue [Unknown]

NARRATIVE: CASE EVENT DATE: 201411
